FAERS Safety Report 21492511 (Version 1)
Quarter: 2022Q4

REPORT INFORMATION
  Report Type: Spontaneous
  Country: US (occurrence: US)
  Receive Date: 20221021
  Receipt Date: 20221021
  Transmission Date: 20230113
  Serious: No
  Sender: FDA-Public Use
  Company Number: US-SAARTEMIS-SAC202009010028

PATIENT
  Age: 54 Year
  Sex: Male

DRUGS (6)
  1. LANTUS [Suspect]
     Active Substance: INSULIN GLARGINE
     Dosage: 120 IU, Q12H
     Route: 058
  2. LANTUS [Suspect]
     Active Substance: INSULIN GLARGINE
     Dosage: 160 IU, Q12H
     Route: 058
  3. LANTUS [Suspect]
     Active Substance: INSULIN GLARGINE
     Dosage: 150 IU, Q12H
     Route: 058
  4. LANTUS [Suspect]
     Active Substance: INSULIN GLARGINE
     Dosage: 100 IU, Q12H
     Route: 058
  5. LANTUS [Suspect]
     Active Substance: INSULIN GLARGINE
     Dosage: 80 IU, BID
     Route: 058
  6. LANTUS [Suspect]
     Active Substance: INSULIN GLARGINE
     Dosage: 80 IU, BID
     Route: 058

REACTIONS (3)
  - Adverse drug reaction [Unknown]
  - Off label use [Unknown]
  - Inappropriate schedule of product administration [Unknown]
